FAERS Safety Report 18049784 (Version 1)
Quarter: 2020Q3

REPORT INFORMATION
  Report Type: Spontaneous
  Country: US (occurrence: US)
  Receive Date: 20200721
  Receipt Date: 20200721
  Transmission Date: 20201103
  Serious: Yes (Hospitalization)
  Sender: FDA-Public Use
  Company Number: US-B.BRAUN MEDICAL INC.-2087547

PATIENT
  Age: 54 Year
  Sex: Female
  Weight: 59.09 kg

DRUGS (1)
  1. STERILE WATER [Suspect]
     Active Substance: WATER
     Route: 042
     Dates: start: 20200619

REACTIONS (4)
  - Abdominal discomfort [None]
  - Medication error [None]
  - Nausea [None]
  - Blood urine present [None]
